APPROVED DRUG PRODUCT: RITONAVIR
Active Ingredient: RITONAVIR
Strength: 100MG
Dosage Form/Route: TABLET;ORAL
Application: A206614 | Product #001 | TE Code: AB
Applicant: AUROBINDO PHARMA LTD
Approved: Sep 17, 2018 | RLD: No | RS: Yes | Type: RX